FAERS Safety Report 7005326-3 (Version None)
Quarter: 2010Q3

REPORT INFORMATION
  Report Type: 
  Country: None (occurrence: None)
  Receive Date: 20100921
  Receipt Date: 20100910
  Transmission Date: 20110219
  Serious: Yes (Other)
  Sender: FDA-Public Use
  Company Number: US-BAYER-200941780NA

PATIENT
  Age: 26 Year
  Sex: Female

DRUGS (2)
  1. MIRENA [Suspect]
     Indication: PRODUCT USED FOR UNKNOWN INDICATION
     Dosage: CONTINUOUS
     Route: 015
     Dates: start: 20090501
  2. ANTIBIOTICS [Concomitant]
     Indication: BACTERIAL INFECTION

REACTIONS (7)
  - ABDOMINAL PAIN [None]
  - ALOPECIA [None]
  - CERVICAL DYSPLASIA [None]
  - COMPLICATION OF DEVICE REMOVAL [None]
  - DEVICE DISLOCATION [None]
  - HEADACHE [None]
  - VAGINAL DISCHARGE [None]
